FAERS Safety Report 8277108-6 (Version None)
Quarter: 2012Q2

REPORT INFORMATION
  Report Type: 
  Country: None (occurrence: None)
  Receive Date: 20120412
  Receipt Date: 20120328
  Transmission Date: 20120825
  Serious: Yes (Hospitalization)
  Sender: FDA-Public Use
  Company Number: DE-ROCHE-CID000000001986651

PATIENT
  Sex: Male
  Weight: 62.4 kg

DRUGS (12)
  1. VITAMIN B-12 [Concomitant]
     Dates: start: 20111201
  2. ASPIRIN [Concomitant]
     Dates: start: 20110101
  3. VERTIGO VOMEX [Concomitant]
     Dates: end: 20120326
  4. FLUVASTATIN SODIUM [Concomitant]
     Dates: end: 20120326
  5. FOLCUR [Concomitant]
     Dates: start: 20111201
  6. PEMETREXED DISODIUM [Suspect]
     Indication: NON-SMALL CELL LUNG CANCER
     Dosage: LAST DOSE PRIOR TO SAE 15 MAR 2012
     Route: 042
     Dates: start: 20111223
  7. CALCIMAGON [Concomitant]
     Dates: end: 20120326
  8. ALFUZOSIN HCL [Concomitant]
     Dates: end: 20120326
  9. AVASTIN [Suspect]
     Indication: NON-SMALL CELL LUNG CANCER
     Dosage: LAST DOSE PRIOR TO SAE 15 MAR 2012
     Route: 042
     Dates: start: 20111223
  10. MOVIPREP [Concomitant]
     Dates: end: 20120326
  11. CARBOPLATIN [Suspect]
     Indication: NON-SMALL CELL LUNG CANCER
     Dosage: LAST DOSE PRIOR TO SAE 22 FEB 2012
     Dates: start: 20111223
  12. METOPROLOL TARTRATE AND HYDROCHLOROTHIAZIDE [Concomitant]
     Dates: end: 20120326

REACTIONS (3)
  - THROMBOCYTOPENIA [None]
  - NEUTROPENIA [None]
  - GENERAL PHYSICAL HEALTH DETERIORATION [None]
